FAERS Safety Report 21271913 (Version 1)
Quarter: 2022Q3

REPORT INFORMATION
  Report Type: Spontaneous
  Country: US (occurrence: US)
  Receive Date: 20220830
  Receipt Date: 20220830
  Transmission Date: 20221027
  Serious: Yes (Death, Other)
  Sender: FDA-Public Use
  Company Number: US-ABBVIE-22K-163-4521949-00

PATIENT
  Age: 89 Year
  Sex: Female

DRUGS (1)
  1. SYNTHROID [Suspect]
     Active Substance: LEVOTHYROXINE SODIUM
     Indication: Hypothyroidism
     Dosage: THERAPY STARTED IN PATIENT^S FIFTIES
     Route: 048

REACTIONS (3)
  - Death [Fatal]
  - Encephalitis [Unknown]
  - Alopecia [Unknown]

NARRATIVE: CASE EVENT DATE: 20190504
